FAERS Safety Report 5631818-5 (Version None)
Quarter: 2008Q1

REPORT INFORMATION
  Report Type: 
  Country: None (occurrence: None)
  Receive Date: 20080220
  Receipt Date: 20080212
  Transmission Date: 20080703
  Serious: Yes (Other)
  Sender: FDA-Public Use
  Company Number: PHBS2008BR02191

PATIENT
  Age: 62 Year
  Sex: Female
  Weight: 63 kg

DRUGS (4)
  1. RIVOTRIL [Concomitant]
     Indication: DEPRESSION
     Dosage: 2 MG, QD
     Route: 048
     Dates: start: 20040101
  2. VENLAFAXINE HCL [Concomitant]
     Dosage: 75 MG, QD
     Route: 048
     Dates: start: 20040101
  3. FORASEQ [Suspect]
     Dosage: FOR 12 / BUDE 40 MCG, BID
     Dates: start: 20040101, end: 20080205
  4. FORASEQ [Suspect]
     Dosage: FORM 12 + BUTE 40 MCG, QD
     Dates: start: 20080205

REACTIONS (5)
  - COUGH [None]
  - DYSPNOEA [None]
  - HAEMATOMA [None]
  - NASOPHARYNGITIS [None]
  - PRURITUS [None]
